FAERS Safety Report 7363671 (Version 4)
Quarter: 2014Q3

REPORT INFORMATION
  Report Type: Spontaneous
  Country: IT (occurrence: None)
  Receive Date: 20100409
  Receipt Date: 20140822
  Transmission Date: 20150326
  Serious: Yes (Hospitalization)
  Sender: FDA-Public Use
  Company Number: 552649

PATIENT
  Age: 60 Year
  Sex: Male

DRUGS (13)
  1. METHYLPREDNISOLONE [Concomitant]
     Active Substance: METHYLPREDNISOLONE
  2. ALLOPURINOL. [Concomitant]
     Active Substance: ALLOPURINOL
  3. PREGFILGRASTIM [Concomitant]
  4. PREDNISONE. [Concomitant]
     Active Substance: PREDNISONE
  5. SULFAMETHOXAZOLE AND TRIMETHOPRIM [Concomitant]
     Active Substance: SULFAMETHOXAZOLE\TRIMETHOPRIM
  6. GLIBOMET [Concomitant]
     Active Substance: GLYBURIDE\METFORMIN HYDROCHLORIDE
  7. BSIOPROLOL [Concomitant]
  8. UROMITEXAN [Concomitant]
     Active Substance: MESNA
  9. (VINCRISTINE TEVA) [Suspect]
     Active Substance: VINCRISTINE
     Indication: NON-HODGKIN^S LYMPHOMA
     Dosage: 2 MG , INTRAVENOUS
     Route: 042
     Dates: start: 20091130, end: 20091130
  10. METHOTREXATE [Suspect]
     Active Substance: METHOTREXATE
     Indication: NON-HODGKIN^S LYMPHOMA
     Dosage: 12 MG, INTRATHECAL
     Route: 037
     Dates: start: 20091130, end: 20091130
  11. CYCLOPHOSPHAMIDE. [Suspect]
     Active Substance: CYCLOPHOSPHAMIDE
     Indication: NON-HODGKIN^S LYMPHOMA
     Dosage: 2200 MG, INTRAVENOUS
     Route: 042
     Dates: start: 20091130, end: 20091130
  12. IRBESARTAN. [Concomitant]
     Active Substance: IRBESARTAN
  13. (DOXORUBICIN [Suspect]
     Active Substance: DOXORUBICIN
     Indication: NON-HODGKIN^S LYMPHOMA
     Dosage: 135 MG, INTRAVENOUS
     Route: 042
     Dates: start: 20091130, end: 20091130

REACTIONS (2)
  - Stomatitis [None]
  - Paraesthesia [None]

NARRATIVE: CASE EVENT DATE: 20091214
